FAERS Safety Report 8589186-5 (Version None)
Quarter: 2012Q3

REPORT INFORMATION
  Report Type: 
  Country: None (occurrence: None)
  Receive Date: 20120813
  Receipt Date: 20120731
  Transmission Date: 20120928
  Serious: Yes (Other)
  Sender: FDA-Public Use
  Company Number: DE-JNJFOC-20120803997

PATIENT
  Age: 59 Year
  Sex: Female

DRUGS (4)
  1. TRAMADOL HYDROCHLORIDE [Concomitant]
     Indication: PRODUCT USED FOR UNKNOWN INDICATION
     Route: 048
     Dates: end: 20120101
  2. ALL OTHER THERAPEUTIC PRODUCTS [Concomitant]
     Indication: BLOOD PRESSURE ABNORMAL
     Route: 048
     Dates: start: 20120101
  3. METAMIZOLE [Concomitant]
     Indication: PRODUCT USED FOR UNKNOWN INDICATION
     Dosage: AS NEEDED
     Route: 048
  4. PALEXIA RETARD [Suspect]
     Indication: POST-TRAUMATIC PAIN
     Route: 048
     Dates: start: 20120101

REACTIONS (2)
  - VISUAL ACUITY REDUCED [None]
  - GAMMA-GLUTAMYLTRANSFERASE INCREASED [None]
